FAERS Safety Report 4707435-8 (Version None)
Quarter: 2005Q3

REPORT INFORMATION
  Report Type: 
  Country: None (occurrence: None)
  Receive Date: 20050706
  Receipt Date: 20050629
  Transmission Date: 20060218
  Serious: Yes (Hospitalization)
  Sender: FDA-Public Use
  Company Number: US-BRISTOL-MYERS SQUIBB COMPANY-13020573

PATIENT
  Age: 75 Year
  Sex: Male
  Weight: 65 kg

DRUGS (4)
  1. CETUXIMAB [Suspect]
     Indication: OESOPHAGEAL CARCINOMA
     Dosage: INITIAL TX DATE: 09-JUN-05. PT HAD REC'D 2 WEEKS OF CHEMO PRIOR TO EVENT.  CHEMO HELD ON 27-JUN-05
     Dates: start: 20050601, end: 20050601
  2. TAXOL [Suspect]
     Indication: OESOPHAGEAL CARCINOMA
     Dosage: INITIAL TX DATE: 09-JUN-05. PT HAD REC'D 2 WEEKS OF CHEMO PRIOR TO EVENT. CHEMO HELD ON 27-JUN-05.
     Dates: start: 20050601, end: 20050601
  3. CARBOPLATIN [Suspect]
     Indication: OESOPHAGEAL CARCINOMA
     Dosage: INITIAL TX DATE:09-JUN-05 (AUC 2)/PT HAD REC'D 2 WKS OF CHEMO PRIOR TO EVENT/CHEMO HELD ON 27-JUN-05
     Dates: start: 20050601, end: 20050601
  4. RADIATION THERAPY [Suspect]
     Indication: OESOPHAGEAL CARCINOMA

REACTIONS (5)
  - ANOREXIA [None]
  - DEHYDRATION [None]
  - FATIGUE [None]
  - RASH [None]
  - WEIGHT DECREASED [None]
